FAERS Safety Report 4381437-6 (Version None)
Quarter: 2004Q2

REPORT INFORMATION
  Report Type: 
  Country: None (occurrence: None)
  Receive Date: 20040617
  Receipt Date: 20040617
  Transmission Date: 20050107
  Serious: Yes (Life-Threatening, Hospitalization)
  Sender: FDA-Public Use
  Company Number: None

PATIENT
  Age: 70 Year
  Sex: Female
  Weight: 60.782 kg

DRUGS (1)
  1. MACROBID [Suspect]
     Indication: CYSTITIS
     Dates: start: 20040413, end: 20040413

REACTIONS (4)
  - BODY TEMPERATURE INCREASED [None]
  - CARDIAC FAILURE [None]
  - CHILLS [None]
  - RESPIRATORY FAILURE [None]
